FAERS Safety Report 4462056-X (Version None)
Quarter: 2004Q3

REPORT INFORMATION
  Report Type: 
  Country: None (occurrence: None)
  Receive Date: 20040924
  Receipt Date: 20040910
  Transmission Date: 20050211
  Serious: No
  Sender: FDA-Public Use
  Company Number: S04-USA-00905-01

PATIENT
  Age: 28 Year
  Sex: Female
  Weight: 68.0396 kg

DRUGS (3)
  1. CELEXA [Suspect]
     Indication: DEPRESSION
     Dosage: 30 MG QD PO
     Route: 048
  2. WELLBUTRIN [Concomitant]
  3. ORTHO TRI-CYCLEN [Concomitant]

REACTIONS (6)
  - AMNIOCENTESIS ABNORMAL [None]
  - BREECH DELIVERY [None]
  - CAESAREAN SECTION [None]
  - HEADACHE [None]
  - INSOMNIA [None]
  - PREGNANCY [None]
